FAERS Safety Report 8901164 (Version 1)
Quarter: 2012Q4

REPORT INFORMATION
  Report Type: 
  Country: US (occurrence: US)
  Receive Date: 20121109
  Receipt Date: 20121109
  Transmission Date: 20130627
  Serious: Yes (Death)
  Sender: FDA-Public Use
  Company Number: US-NOVOPROD-363373

PATIENT
  Age: 55 Year
  Sex: Male

DRUGS (1)
  1. NOVOLOG [Suspect]
     Indication: EUTHANASIA

REACTIONS (2)
  - Euthanasia [Fatal]
  - Intentional overdose [Fatal]
